FAERS Safety Report 6589409-8 (Version None)
Quarter: 2010Q1

REPORT INFORMATION
  Report Type: 
  Country: None (occurrence: None)
  Receive Date: 20100218
  Receipt Date: 20100211
  Transmission Date: 20100710
  Serious: Yes (Death)
  Sender: FDA-Public Use
  Company Number: IE-CVT-090679

PATIENT

DRUGS (13)
  1. RANEXA [Suspect]
     Indication: DRUG USE FOR UNKNOWN INDICATION
     Dosage: 375 MG, QD
     Dates: start: 20090703
  2. CORDARONE [Suspect]
     Indication: ARRHYTHMIA PROPHYLAXIS
  3. ALDACTONE [Concomitant]
  4. LASIX [Concomitant]
  5. IMDUR [Concomitant]
  6. CYMBALTA [Concomitant]
  7. DALMANE [Concomitant]
  8. CETIRIZINE HCL [Concomitant]
  9. NEXIUM [Concomitant]
  10. SERC /00141802/ [Concomitant]
  11. OXYCONTIN [Concomitant]
  12. WARFARIN                           /00014801/ [Concomitant]
  13. RAMIPRIL                           /00885601/ [Concomitant]

REACTIONS (2)
  - CARDIAC FAILURE [None]
  - DRUG INTERACTION [None]
